FAERS Safety Report 5018883-3 (Version None)
Quarter: 2006Q2

REPORT INFORMATION
  Report Type: 
  Country: None (occurrence: None)
  Receive Date: 20060606
  Receipt Date: 20060530
  Transmission Date: 20061013
  Serious: Yes (Other)
  Sender: FDA-Public Use
  Company Number: US-BRACCO-BDI-008298

PATIENT
  Sex: Female

DRUGS (1)
  1. GASTROGRAFIN [Suspect]
     Route: 048

REACTIONS (2)
  - CONVULSION [None]
  - DRUG INEFFECTIVE [None]
